FAERS Safety Report 16619815 (Version 1)
Quarter: 2019Q3

REPORT INFORMATION
  Report Type: Spontaneous
  Country: US (occurrence: US)
  Receive Date: 20190723
  Receipt Date: 20190723
  Transmission Date: 20191004
  Serious: No
  Sender: FDA-Public Use
  Company Number: US-IGSA-SR10006500

PATIENT
  Age: 67 Year
  Sex: Female
  Weight: 92 kg

DRUGS (19)
  1. GAMUNEX-C [Suspect]
     Active Substance: HUMAN IMMUNOGLOBULIN G
     Indication: IMMUNODEFICIENCY
     Dosage: 30 G, Q.WK.
     Route: 042
     Dates: start: 20180306
  2. LISINOPRIL. [Concomitant]
     Active Substance: LISINOPRIL
     Dosage: 20 MG, QD
     Route: 048
  3. ADVAIR DISKUS [Concomitant]
     Active Substance: FLUTICASONE PROPIONATE\SALMETEROL XINAFOATE
  4. LYRICA [Concomitant]
     Active Substance: PREGABALIN
     Dosage: 75 MG, QD
     Route: 048
  5. OXYBUTYNIN. [Concomitant]
     Active Substance: OXYBUTYNIN CHLORIDE
     Dosage: 5 MG, QD
     Route: 048
  6. ESZOPICLONE. [Concomitant]
     Active Substance: ESZOPICLONE
     Dosage: 3 MG, QD
     Route: 048
  7. VITAMIN D3 [Concomitant]
     Active Substance: CHOLECALCIFEROL
     Dosage: 2000 IU, QD
     Route: 048
  8. DILTIAZEM ER [Concomitant]
     Active Substance: DILTIAZEM
     Dosage: 180 MG, QD
     Route: 048
  9. PANTOPRAZOLE [Concomitant]
     Active Substance: PANTOPRAZOLE
     Route: 048
  10. XTAMPZA ER [Concomitant]
     Active Substance: OXYCODONE
     Dosage: 30 MG, QD
     Route: 048
  11. IRON [Concomitant]
     Active Substance: IRON
     Dosage: 65 MG, QD
     Route: 048
  12. METFORMIN [Concomitant]
     Active Substance: METFORMIN HYDROCHLORIDE
     Dosage: 500 MG, BID
     Route: 048
  13. RANITIDINE. [Concomitant]
     Active Substance: RANITIDINE
     Dosage: 300 MG, QD
     Route: 048
  14. CALCIUM + MAGNESIUM + ZINK [Concomitant]
     Route: 048
  15. FLUTICASONE. [Concomitant]
     Active Substance: FLUTICASONE
     Dosage: 50 ?G, UNK
  16. PRAVASTATIN. [Concomitant]
     Active Substance: PRAVASTATIN
     Dosage: 40 MG, QD
     Route: 048
  17. FLUOXETINE [Concomitant]
     Active Substance: FLUOXETINE HYDROCHLORIDE
     Dosage: 20 MG, QD
     Route: 048
  18. MYRBETRIQ [Concomitant]
     Active Substance: MIRABEGRON
     Dosage: 50 MG, QD
     Route: 048
  19. AMITIZA [Concomitant]
     Active Substance: LUBIPROSTONE
     Dosage: 24 ?G, QD
     Route: 048

REACTIONS (3)
  - Blood urea increased [Recovering/Resolving]
  - Blood creatinine increased [Recovering/Resolving]
  - Renal impairment [Recovering/Resolving]

NARRATIVE: CASE EVENT DATE: 20180426
